FAERS Safety Report 7251036-7 (Version None)
Quarter: 2011Q1

REPORT INFORMATION
  Report Type: 
  Country: None (occurrence: None)
  Receive Date: 20110128
  Receipt Date: 20110126
  Transmission Date: 20110831
  Serious: No
  Sender: FDA-Public Use
  Company Number: JP-ABBOTT-11P-087-0697491-00

PATIENT
  Sex: Female

DRUGS (19)
  1. POTASSIUM CHLORIDE [Concomitant]
     Indication: PRODUCT USED FOR UNKNOWN INDICATION
     Route: 048
  2. LOXOPROFEN SODIUM HYDRATE [Concomitant]
     Indication: PRODUCT USED FOR UNKNOWN INDICATION
     Route: 048
  3. HYDROCORTISONE-FRADIOMYCIN COMBINED DRUG [Concomitant]
     Indication: PRODUCT USED FOR UNKNOWN INDICATION
  4. HUMIRA [Suspect]
     Dosage: 80 MG LOADING DOSE
     Dates: start: 20101221, end: 20101221
  5. ZOLPIDEM TARTRATE [Concomitant]
     Indication: PRODUCT USED FOR UNKNOWN INDICATION
     Route: 048
  6. KETOPROFEN [Concomitant]
     Indication: PRODUCT USED FOR UNKNOWN INDICATION
  7. BIFONAZOLE [Concomitant]
     Indication: PRODUCT USED FOR UNKNOWN INDICATION
  8. ALFACALCIDOL [Concomitant]
     Indication: PRODUCT USED FOR UNKNOWN INDICATION
     Route: 048
  9. LOPERAMIDE HYDROCHLORIDE [Concomitant]
     Indication: PRODUCT USED FOR UNKNOWN INDICATION
     Route: 048
  10. HUMIRA [Suspect]
     Indication: CROHN'S DISEASE
     Dosage: 160 MG LOADING DOSE
     Route: 058
     Dates: start: 20101207, end: 20101207
  11. ALBUMIN TANNATE [Concomitant]
     Indication: PRODUCT USED FOR UNKNOWN INDICATION
  12. SCOPOLAMINE BUTYLBROMIDE [Concomitant]
     Indication: PRODUCT USED FOR UNKNOWN INDICATION
     Dosage: AS NEEDED.
     Route: 048
  13. CALCIUM LACTATE HYDRATE [Concomitant]
     Indication: PRODUCT USED FOR UNKNOWN INDICATION
     Route: 048
  14. METRONIDAZOLE [Concomitant]
     Indication: PRODUCT USED FOR UNKNOWN INDICATION
     Route: 048
  15. RABEPRAZOLE SODIUM [Concomitant]
     Indication: PRODUCT USED FOR UNKNOWN INDICATION
     Route: 048
  16. MESALAZINE [Concomitant]
     Indication: PRODUCT USED FOR UNKNOWN INDICATION
     Route: 048
  17. WHITE PETROLATUM [Concomitant]
     Indication: PRODUCT USED FOR UNKNOWN INDICATION
  18. LIDOCAINE HYDROCHLORIDE [Concomitant]
     Indication: PRODUCT USED FOR UNKNOWN INDICATION
  19. ANTIBIOTICS-RESISTANT LACTIC ACID BACTERIAE [Concomitant]
     Indication: PRODUCT USED FOR UNKNOWN INDICATION
     Route: 048

REACTIONS (2)
  - RASH [None]
  - EOSINOPHIL COUNT INCREASED [None]
